FAERS Safety Report 12384379 (Version 1)
Quarter: 2016Q2

REPORT INFORMATION
  Report Type: Spontaneous
  Country: IQ (occurrence: IQ)
  Receive Date: 20160519
  Receipt Date: 20160519
  Transmission Date: 20160815
  Serious: Yes (Other)
  Sender: FDA-Public Use
  Company Number: IQ-ROCHE-1758859

PATIENT
  Age: 28 Year
  Sex: Female

DRUGS (3)
  1. MABTHERA [Suspect]
     Active Substance: RITUXIMAB
     Indication: POLYMYOSITIS
     Dosage: Q2W
     Route: 042
     Dates: start: 20151210
  2. METHOTREXATE [Concomitant]
     Active Substance: METHOTREXATE
     Indication: POLYMYOSITIS
     Dosage: 1QW
     Route: 048
     Dates: start: 201411
  3. PREDNISOLONE. [Concomitant]
     Active Substance: PREDNISOLONE
     Indication: POLYMYOSITIS
     Route: 048
     Dates: start: 2001

REACTIONS (2)
  - Off label use [Unknown]
  - Skin fibrosis [Not Recovered/Not Resolved]

NARRATIVE: CASE EVENT DATE: 20160511
